FAERS Safety Report 8609987-4 (Version None)
Quarter: 2012Q3

REPORT INFORMATION
  Report Type: 
  Country: None (occurrence: None)
  Receive Date: 20120822
  Receipt Date: 20120809
  Transmission Date: 20120928
  Serious: Yes (Other)
  Sender: FDA-Public Use
  Company Number: US-BRISTOL-MYERS SQUIBB COMPANY-16847501

PATIENT
  Age: 57 Year
  Sex: Male

DRUGS (2)
  1. SUSTIVA [Suspect]
     Indication: HIV INFECTION
  2. TRUVADA [Suspect]
     Indication: HIV INFECTION

REACTIONS (3)
  - RENAL DISORDER [None]
  - GASTROINTESTINAL DISORDER [None]
  - VIRAL MUTATION IDENTIFIED [None]
